FAERS Safety Report 9547142 (Version 1)
Quarter: 2013Q3

REPORT INFORMATION
  Report Type: Spontaneous
  Country: CN (occurrence: CN)
  Receive Date: 20130924
  Receipt Date: 20130924
  Transmission Date: 20140515
  Serious: Yes (Other)
  Sender: FDA-Public Use
  Company Number: CN-BAYER-2013-111458

PATIENT
  Age: 79 Year
  Sex: Female

DRUGS (5)
  1. MOXIFLOXACIN IV [Suspect]
     Indication: PNEUMONIA
     Dosage: 400 MG, QD
     Route: 042
     Dates: start: 20130129, end: 20130203
  2. CEFOPERAZONE SODIUM/SULBACTAM SODIUM [Concomitant]
     Dosage: 3 G, BID
     Route: 042
     Dates: start: 20130118, end: 20130129
  3. CEFOPERAZONE SODIUM/SULBACTAM SODIUM [Concomitant]
     Dosage: 3 G, BID
     Route: 042
     Dates: start: 20130118, end: 20130129
  4. ATORVASTATIN CALCIUM [Concomitant]
     Dosage: 20 MG, QD
     Route: 048
     Dates: start: 20130118
  5. MEROPENEM [Concomitant]
     Dosage: 0.5 G, TID
     Route: 042
     Dates: start: 20130203

REACTIONS (14)
  - Mania [Recovering/Resolving]
  - Dementia [Recovering/Resolving]
  - Psychotic disorder [Recovering/Resolving]
  - Blood pressure increased [Recovered/Resolved]
  - Pyrexia [Recovered/Resolved]
  - Abnormal behaviour [Recovering/Resolving]
  - Nervousness [Recovering/Resolving]
  - Anxiety [Recovering/Resolving]
  - Agnosia [Recovering/Resolving]
  - Inappropriate affect [Recovering/Resolving]
  - Hallucination [Recovering/Resolving]
  - Aggression [Recovering/Resolving]
  - Akathisia [Recovering/Resolving]
  - Restlessness [Recovering/Resolving]
